FAERS Safety Report 10436285 (Version 1)
Quarter: 2014Q3

REPORT INFORMATION
  Report Type: Spontaneous
  Country: US (occurrence: US)
  Receive Date: 20140908
  Receipt Date: 20140908
  Transmission Date: 20150326
  Serious: Yes (Hospitalization)
  Sender: FDA-Public Use
  Company Number: US-SA-2014SA119750

PATIENT
  Age: 61 Year
  Sex: Female
  Weight: 92.1 kg

DRUGS (15)
  1. BLINDED THERAPY [Suspect]
     Active Substance: UNSPECIFIED INGREDIENT
     Indication: OSTEOARTHRITIS
     Route: 065
     Dates: start: 20090608
  2. NEXIUM [Concomitant]
     Active Substance: ESOMEPRAZOLE MAGNESIUM
     Dosage: 40MG
     Dates: start: 20081223, end: 20090601
  3. ALBUTEROL. [Concomitant]
     Active Substance: ALBUTEROL
     Indication: ASTHMA
     Dates: start: 20021215
  4. BLINDED THERAPY [Suspect]
     Active Substance: UNSPECIFIED INGREDIENT
     Indication: RHEUMATOID ARTHRITIS
     Route: 065
     Dates: start: 20090608
  5. GARLIC. [Concomitant]
     Active Substance: GARLIC
     Indication: SUPPLEMENTATION THERAPY
  6. MOMETASONE FUROATE. [Concomitant]
     Active Substance: MOMETASONE FUROATE
     Indication: ASTHMA
     Dosage: 160MG
     Dates: start: 20070615
  7. LOVENOX [Suspect]
     Active Substance: ENOXAPARIN SODIUM
     Indication: THROMBOSIS PROPHYLAXIS
     Route: 058
     Dates: start: 20090602, end: 20090604
  8. NEXIUM [Concomitant]
     Active Substance: ESOMEPRAZOLE MAGNESIUM
     Dates: start: 20090608
  9. BLINDED THERAPY [Suspect]
     Active Substance: UNSPECIFIED INGREDIENT
     Indication: RHEUMATOID ARTHRITIS
     Route: 065
     Dates: start: 20081222, end: 20090526
  10. DIOVAN [Concomitant]
     Active Substance: VALSARTAN
     Indication: HYPERTENSION
     Dosage: 120/25
     Dates: start: 2006
  11. MV [Concomitant]
     Indication: SUPPLEMENTATION THERAPY
  12. FISH OIL [Concomitant]
     Active Substance: FISH OIL
     Indication: SUPPLEMENTATION THERAPY
     Dates: start: 2006
  13. CALCIUM [Concomitant]
     Active Substance: CALCIUM
  14. BLINDED THERAPY [Suspect]
     Active Substance: UNSPECIFIED INGREDIENT
     Indication: OSTEOARTHRITIS
     Route: 065
     Dates: start: 20081222, end: 20090526
  15. VITAMIN C [Concomitant]
     Active Substance: ASCORBIC ACID
     Indication: SUPPLEMENTATION THERAPY

REACTIONS (3)
  - Monarthritis [Recovered/Resolved]
  - Post procedural haemorrhage [Recovered/Resolved]
  - Anaemia postoperative [Recovered/Resolved]

NARRATIVE: CASE EVENT DATE: 20090602
